FAERS Safety Report 23285371 (Version 4)
Quarter: 2024Q1

REPORT INFORMATION
  Report Type: Spontaneous
  Country: US (occurrence: US)
  Receive Date: 20231211
  Receipt Date: 20240315
  Transmission Date: 20240410
  Serious: Yes (Death, Hospitalization)
  Sender: FDA-Public Use
  Company Number: US-JNJFOC-20231211801

PATIENT
  Age: 68 Year
  Sex: Male

DRUGS (2)
  1. TECVAYLI [Suspect]
     Active Substance: TECLISTAMAB-CQYV
     Indication: Plasma cell myeloma
     Route: 065
     Dates: start: 20221219
  2. TECVAYLI [Suspect]
     Active Substance: TECLISTAMAB-CQYV
     Route: 065

REACTIONS (9)
  - Plasma cell myeloma [Fatal]
  - Cognitive disorder [Unknown]
  - Haemorrhage [Unknown]
  - Muscular weakness [Unknown]
  - Pyrexia [Unknown]
  - Tremor [Unknown]
  - Fatigue [Unknown]
  - Diarrhoea [Unknown]
  - Decreased immune responsiveness [Unknown]

NARRATIVE: CASE EVENT DATE: 20230101
